FAERS Safety Report 24760057 (Version 1)
Quarter: 2024Q4

REPORT INFORMATION
  Report Type: Other
  Country: FO (occurrence: FO)
  Receive Date: 20241220
  Receipt Date: 20241220
  Transmission Date: 20250115
  Serious: Yes (Other)
  Sender: B BRAUN
  Company Number: FO-B.Braun Medical Inc.-2167508

PATIENT
  Age: 47 Year
  Sex: Male

DRUGS (3)
  1. SODIUM CHLORIDE [Suspect]
     Active Substance: SODIUM CHLORIDE
     Indication: Hypercalcaemia
  2. CINACALCET [Suspect]
     Active Substance: CINACALCET
  3. Calcium and vitamin D supplementation [Concomitant]

REACTIONS (1)
  - Drug ineffective [Unknown]
